FAERS Safety Report 7200201-3 (Version None)
Quarter: 2010Q4

REPORT INFORMATION
  Report Type: 
  Country: None (occurrence: None)
  Receive Date: 20101228
  Receipt Date: 20101220
  Transmission Date: 20110411
  Serious: Yes (Hospitalization)
  Sender: FDA-Public Use
  Company Number: US-ALEXION-A201001641

PATIENT
  Sex: Female
  Weight: 46 kg

DRUGS (11)
  1. SOLIRIS [Suspect]
     Indication: PROPHYLAXIS AGAINST TRANSPLANT REJECTION
     Dosage: 1200 MG, SINGLE
     Route: 042
     Dates: start: 20100630, end: 20100630
  2. SOLIRIS [Suspect]
     Dosage: 900 MG, QW
     Route: 042
     Dates: start: 20100701, end: 20100728
  3. TYLENOL (CAPLET) [Concomitant]
     Indication: PAIN
     Dosage: 500 MG-1000 MG, QD AS NEEDED
     Route: 048
  4. DEXLANSOPRAZOLE [Concomitant]
     Dosage: 60 MG, BID
     Route: 048
  5. KEPPRA [Concomitant]
     Dosage: 125 MG AM; 250 MG PM
     Route: 048
  6. MULTI-VITAMINS [Concomitant]
     Dosage: 1 TAB, QD
     Route: 048
  7. NOVOLOG [Concomitant]
     Indication: TYPE 1 DIABETES MELLITUS
     Dosage: 2-4 UNITS, TID
     Route: 058
  8. HUMULIN N [Concomitant]
     Indication: TYPE 1 DIABETES MELLITUS
     Dosage: 10 UNITS, QD
     Route: 058
  9. CELLCEPT [Concomitant]
     Dosage: 250 MG, BID
     Route: 048
  10. PREDNISONE [Concomitant]
     Dosage: 5 MG, QD
     Route: 048
  11. PROGRAF [Concomitant]
     Dosage: 3 MG AM; 2 MG PM
     Route: 048

REACTIONS (4)
  - BLOOD GLUCOSE INCREASED [None]
  - CORONARY ARTERY DISEASE [None]
  - CORONARY ARTERY DISSECTION [None]
  - MYOCARDIAL INFARCTION [None]
